FAERS Safety Report 20443726 (Version 1)
Quarter: 2022Q1

REPORT INFORMATION
  Report Type: Report from Study
  Country: DE (occurrence: DE)
  Receive Date: 20220208
  Receipt Date: 20220208
  Transmission Date: 20220423
  Serious: Yes (Hospitalization, Other)
  Sender: FDA-Public Use
  Company Number: DE-TAKEDA-2022TUS008248

PATIENT
  Age: 33 Year
  Sex: Female

DRUGS (20)
  1. TEDUGLUTIDE [Suspect]
     Active Substance: TEDUGLUTIDE
     Indication: Short-bowel syndrome
     Dosage: 3.200 MILLIGRAM, 1/WEEK
     Route: 065
     Dates: start: 20200511, end: 202102
  2. TEDUGLUTIDE [Suspect]
     Active Substance: TEDUGLUTIDE
     Indication: Short-bowel syndrome
     Dosage: 3.200 MILLIGRAM, 1/WEEK
     Route: 065
     Dates: start: 20200511, end: 202102
  3. TEDUGLUTIDE [Suspect]
     Active Substance: TEDUGLUTIDE
     Indication: Short-bowel syndrome
     Dosage: 3.200 MILLIGRAM, 1/WEEK
     Route: 065
     Dates: start: 20200511, end: 202102
  4. TEDUGLUTIDE [Suspect]
     Active Substance: TEDUGLUTIDE
     Indication: Short-bowel syndrome
     Dosage: 3.200 MILLIGRAM, 1/WEEK
     Route: 065
     Dates: start: 20200511, end: 202102
  5. TEDUGLUTIDE [Suspect]
     Active Substance: TEDUGLUTIDE
     Dosage: 3.200 MILLIGRAM, 1/WEEK
     Route: 065
     Dates: start: 202102, end: 202105
  6. TEDUGLUTIDE [Suspect]
     Active Substance: TEDUGLUTIDE
     Dosage: 3.200 MILLIGRAM, 1/WEEK
     Route: 065
     Dates: start: 202102, end: 202105
  7. TEDUGLUTIDE [Suspect]
     Active Substance: TEDUGLUTIDE
     Dosage: 3.200 MILLIGRAM, 1/WEEK
     Route: 065
     Dates: start: 202102, end: 202105
  8. TEDUGLUTIDE [Suspect]
     Active Substance: TEDUGLUTIDE
     Dosage: 3.200 MILLIGRAM, 1/WEEK
     Route: 065
     Dates: start: 202102, end: 202105
  9. TEDUGLUTIDE [Suspect]
     Active Substance: TEDUGLUTIDE
     Dosage: 3.200 MILLIGRAM, 1/WEEK
     Route: 065
     Dates: start: 202105, end: 202111
  10. TEDUGLUTIDE [Suspect]
     Active Substance: TEDUGLUTIDE
     Dosage: 3.200 MILLIGRAM, 1/WEEK
     Route: 065
     Dates: start: 202105, end: 202111
  11. TEDUGLUTIDE [Suspect]
     Active Substance: TEDUGLUTIDE
     Dosage: 3.200 MILLIGRAM, 1/WEEK
     Route: 065
     Dates: start: 202105, end: 202111
  12. TEDUGLUTIDE [Suspect]
     Active Substance: TEDUGLUTIDE
     Dosage: 3.200 MILLIGRAM, 1/WEEK
     Route: 065
     Dates: start: 202105, end: 202111
  13. TEDUGLUTIDE [Suspect]
     Active Substance: TEDUGLUTIDE
     Dosage: 3.200 MILLIGRAM, 1/WEEK
     Route: 065
     Dates: start: 202111
  14. TEDUGLUTIDE [Suspect]
     Active Substance: TEDUGLUTIDE
     Dosage: 3.200 MILLIGRAM, 1/WEEK
     Route: 065
     Dates: start: 202111
  15. TEDUGLUTIDE [Suspect]
     Active Substance: TEDUGLUTIDE
     Dosage: 3.200 MILLIGRAM, 1/WEEK
     Route: 065
     Dates: start: 202111
  16. TEDUGLUTIDE [Suspect]
     Active Substance: TEDUGLUTIDE
     Dosage: 3.200 MILLIGRAM, 1/WEEK
     Route: 065
     Dates: start: 202111
  17. PANTOPRAZOLE SODIUM [Concomitant]
     Active Substance: PANTOPRAZOLE SODIUM
     Indication: Short-bowel syndrome
     Dosage: 40 MILLIGRAM, QD
     Route: 042
     Dates: start: 202108
  18. PROGESTERONE [Concomitant]
     Active Substance: PROGESTERONE
     Indication: Salpingo-oophorectomy
     Dosage: 1 DOSAGE FORM, QD
     Route: 048
     Dates: start: 202110
  19. ESTRADIOL [Concomitant]
     Active Substance: ESTRADIOL
     Indication: Salpingo-oophorectomy
     Dosage: 3.6 MILLIGRAM, QD
     Route: 062
     Dates: start: 202110
  20. IMODIUM [Concomitant]
     Active Substance: LOPERAMIDE HYDROCHLORIDE
     Indication: Short-bowel syndrome
     Dosage: 2 MILLIGRAM, BID
     Route: 048
     Dates: start: 20211105

REACTIONS (1)
  - Hydronephrosis [Recovered/Resolved]

NARRATIVE: CASE EVENT DATE: 20210601
